FAERS Safety Report 9017600 (Version 3)
Quarter: 2013Q2

REPORT INFORMATION
  Report Type: Report from Study
  Country: US (occurrence: US)
  Receive Date: 20130117
  Receipt Date: 20130626
  Transmission Date: 20140414
  Serious: Yes (Hospitalization, Other)
  Sender: FDA-Public Use
  Company Number: US-US-EMD SERONO, INC.-7169502

PATIENT
  Age: 44 Year
  Sex: Female

DRUGS (1)
  1. REBIF [Suspect]
     Indication: PRODUCT USED FOR UNKNOWN INDICATION
     Route: 058
     Dates: start: 20040602

REACTIONS (12)
  - Pneumonia [Unknown]
  - Mass [Unknown]
  - Back disorder [Unknown]
  - Glaucoma [Unknown]
  - Cataract [Recovering/Resolving]
  - Lymphoedema [Not Recovered/Not Resolved]
  - Dysphonia [Not Recovered/Not Resolved]
  - Injection site scar [Not Recovered/Not Resolved]
  - Central nervous system lesion [Unknown]
  - Pain in extremity [Unknown]
  - Injection site infection [Recovered/Resolved]
  - Liver function test abnormal [Unknown]
